FAERS Safety Report 25270007 (Version 1)
Quarter: 2025Q2

REPORT INFORMATION
  Report Type: Spontaneous
  Country: ES (occurrence: ES)
  Receive Date: 20250505
  Receipt Date: 20250505
  Transmission Date: 20250716
  Serious: Yes (Other)
  Sender: INTERCHEM
  Company Number: ES-HQ SPECIALTY-ES-2025INT000032

PATIENT
  Age: 12 Month
  Sex: Male

DRUGS (1)
  1. DEXMEDETOMIDINE HYDROCHLORIDE [Suspect]
     Active Substance: DEXMEDETOMIDINE HYDROCHLORIDE
     Indication: Sedation
     Route: 065
     Dates: start: 20250210, end: 20250228

REACTIONS (3)
  - Delirium [Recovered/Resolved]
  - Withdrawal syndrome [Recovered/Resolved]
  - Product administered to patient of inappropriate age [Unknown]

NARRATIVE: CASE EVENT DATE: 20250210
